FAERS Safety Report 21121731 (Version 1)
Quarter: 2022Q3

REPORT INFORMATION
  Report Type: Spontaneous
  Country: GB (occurrence: GB)
  Receive Date: 20220722
  Receipt Date: 20220722
  Transmission Date: 20221026
  Serious: Yes (Other)
  Sender: FDA-Public Use
  Company Number: GB-MHRA-MED-202207201451224070-JLTBK

PATIENT
  Age: 75 Year
  Sex: Male
  Weight: 83 kg

DRUGS (2)
  1. BIKTARVY [Suspect]
     Active Substance: BICTEGRAVIR SODIUM\EMTRICITABINE\TENOFOVIR ALAFENAMIDE FUMARATE
     Indication: HIV infection
     Route: 065
     Dates: start: 20220630, end: 20220712
  2. EZETIMIBE [Concomitant]
     Active Substance: EZETIMIBE
     Indication: Blood cholesterol increased
     Dates: start: 20220630, end: 20220702

REACTIONS (1)
  - Rash macular [Recovering/Resolving]

NARRATIVE: CASE EVENT DATE: 20220630
